FAERS Safety Report 9293680 (Version 1)
Quarter: 2013Q2

REPORT INFORMATION
  Report Type: Spontaneous
  Country: CL (occurrence: CL)
  Receive Date: 20130516
  Receipt Date: 20130516
  Transmission Date: 20140414
  Serious: Yes (Other)
  Sender: FDA-Public Use
  Company Number: CL-UCBSA-086193

PATIENT
  Age: 42 Year
  Sex: Female

DRUGS (1)
  1. XUZAL [Suspect]
     Indication: RUBBER SENSITIVITY
     Dosage: DAILY DOSE: 5 MG
     Route: 048
     Dates: start: 201304, end: 201304

REACTIONS (1)
  - Vasculitis [Recovered/Resolved]
